FAERS Safety Report 4656258-7 (Version None)
Quarter: 2005Q2

REPORT INFORMATION
  Report Type: 
  Country: None (occurrence: None)
  Receive Date: 20050509
  Receipt Date: 20050316
  Transmission Date: 20051028
  Serious: No
  Sender: FDA-Public Use
  Company Number: US-GLAXOSMITHKLINE-A0550051A

PATIENT
  Age: 45 Year
  Sex: Female

DRUGS (4)
  1. AVANDAMET [Suspect]
     Route: 048
     Dates: start: 20050201, end: 20050314
  2. HUMALOG [Concomitant]
     Route: 065
  3. LENTE INSULIN [Concomitant]
     Route: 065
  4. STRATTERA [Concomitant]

REACTIONS (1)
  - BLOOD GLUCOSE DECREASED [None]
